FAERS Safety Report 13667418 (Version 6)
Quarter: 2019Q1

REPORT INFORMATION
  Report Type: Report from Study
  Country: US (occurrence: US)
  Receive Date: 20170620
  Receipt Date: 20190329
  Transmission Date: 20190417
  Serious: Yes (Other)
  Sender: FDA-Public Use
  Company Number: PHHY2017US088056

PATIENT
  Age: 51 Year
  Sex: Female

DRUGS (3)
  1. NAPROXEN SODIUM. [Concomitant]
     Active Substance: NAPROXEN SODIUM
     Indication: PRODUCT USED FOR UNKNOWN INDICATION
     Dosage: UNK
     Route: 065
     Dates: start: 20170517
  2. GILENYA [Suspect]
     Active Substance: FINGOLIMOD HYDROCHLORIDE
     Dosage: 0.5 MG, QD
     Route: 048
     Dates: end: 20170314
  3. GILENYA [Suspect]
     Active Substance: FINGOLIMOD HYDROCHLORIDE
     Indication: MULTIPLE SCLEROSIS
     Dosage: 0.5 MG, QD
     Route: 048

REACTIONS (23)
  - Neck pain [Recovered/Resolved]
  - Contusion [Unknown]
  - Headache [Recovered/Resolved]
  - Dyschromatopsia [Unknown]
  - Urinary tract infection [Recovered/Resolved]
  - Cognitive disorder [Recovered/Resolved]
  - Heart rate decreased [Recovered/Resolved]
  - Aphasia [Unknown]
  - Muscular weakness [Recovered/Resolved]
  - Neuropathy peripheral [Recovered/Resolved]
  - Eye pain [Unknown]
  - Fatigue [Unknown]
  - Post-traumatic headache [Recovered/Resolved]
  - Spondylitis [Unknown]
  - Urinary tract infection [Recovered/Resolved]
  - Blood alkaline phosphatase decreased [Unknown]
  - Muscle contracture [Recovered/Resolved]
  - Dysarthria [Unknown]
  - Arthropathy [Recovered/Resolved]
  - Speech disorder [Unknown]
  - Depression [Recovered/Resolved]
  - Tremor [Recovered/Resolved]
  - Muscular weakness [Unknown]

NARRATIVE: CASE EVENT DATE: 20170225
